FAERS Safety Report 5023640-8 (Version None)
Quarter: 2006Q2

REPORT INFORMATION
  Report Type: 
  Country: None (occurrence: None)
  Receive Date: 20060606
  Receipt Date: 20060526
  Transmission Date: 20061013
  Serious: Yes (Hospitalization)
  Sender: FDA-Public Use
  Company Number: CIP06001231

PATIENT
  Age: 67 Year
  Sex: Female

DRUGS (8)
  1. MACROBID [Suspect]
     Indication: URINARY TRACT INFECTION
     Dosage: ORAL
     Route: 048
     Dates: start: 20060401, end: 20060407
  2. LITHIUM CARBONATE [Suspect]
     Indication: BIPOLAR DISORDER
     Dosage: 450 MG TWICE DAILY, ORAL
     Route: 048
     Dates: start: 20051101, end: 20060407
  3. DEPAKOTE [Concomitant]
  4. PROTONIX [Concomitant]
  5. OXYTROL [Concomitant]
  6. COMBIPATCH [Concomitant]
  7. SYNTHROID [Concomitant]
  8. SELEGILINE HCL [Concomitant]

REACTIONS (2)
  - THERAPEUTIC AGENT TOXICITY [None]
  - URINARY TRACT INFECTION [None]
